FAERS Safety Report 13879712 (Version 1)
Quarter: 2017Q3

REPORT INFORMATION
  Report Type: Spontaneous
  Country: US (occurrence: US)
  Receive Date: 20170818
  Receipt Date: 20170818
  Transmission Date: 20171127
  Serious: Yes (Other)
  Sender: FDA-Public Use
  Company Number: US-ENDO PHARMACEUTICALS INC-2017-004383

PATIENT
  Age: 62 Year
  Sex: Male

DRUGS (16)
  1. SODIUM CITRATE. [Concomitant]
     Active Substance: SODIUM CITRATE
     Indication: ANTICOAGULANT THERAPY
     Dosage: 3 ML, SINGLE, AT 2:36AM
     Route: 065
  2. METOPROLOL. [Suspect]
     Active Substance: METOPROLOL
     Indication: PRODUCT USED FOR UNKNOWN INDICATION
     Dosage: UNK UNK, UNKNOWN
     Route: 065
  3. DEXTROSE 5% [Concomitant]
     Active Substance: DEXTROSE
     Indication: DIALYSIS
     Dosage: 300 ML/HR, UNKNOWN
     Route: 065
  4. SODIUM [Concomitant]
     Active Substance: SODIUM
     Indication: ELECTROLYTE SUBSTITUTION THERAPY
     Dosage: 100 ML/HR
     Route: 042
  5. PRECEDEX [Concomitant]
     Active Substance: DEXMEDETOMIDINE HYDROCHLORIDE
     Indication: PRODUCT USED FOR UNKNOWN INDICATION
     Dosage: 0.2MCG/KG/HR X 57KG
     Route: 065
  6. INSULIN [Concomitant]
     Active Substance: INSULIN NOS
     Indication: PRODUCT USED FOR UNKNOWN INDICATION
     Dosage: UNK UNK, UNKNOWN
     Route: 065
  7. CALCIUM GLUCONATE. [Concomitant]
     Active Substance: CALCIUM GLUCONATE
     Indication: MINERAL SUPPLEMENTATION
     Dosage: 1G, 2G, 3G, 4G, PRN
     Route: 042
  8. DOPAMINE [Concomitant]
     Active Substance: DOPAMINE\DOPAMINE HYDROCHLORIDE
     Indication: PRODUCT USED FOR UNKNOWN INDICATION
     Dosage: 2.5 MCG/KG/MIN X 57KG, UNKNOWN
     Route: 065
  9. INFUSION [Concomitant]
     Active Substance: UNSPECIFIED INGREDIENT
     Indication: RENAL REPLACEMENT THERAPY
     Dosage: UNK,UNK,PRN
  10. ADRENALIN CHLORIDE SOLUTION [Suspect]
     Active Substance: EPINEPHRINE HYDROCHLORIDE
     Indication: PRODUCT USED FOR UNKNOWN INDICATION
     Dosage: 5 MG
     Dates: start: 20170807, end: 20170807
  11. ACETAMINOPHEN. [Concomitant]
     Active Substance: ACETAMINOPHEN
     Indication: PAIN
     Dosage: UNK UNK, PRN
     Route: 048
  12. OXOFERIN [Concomitant]
     Indication: THROMBOSIS PROPHYLAXIS
     Dosage: UNK UNK, DAILY
     Route: 058
  13. ACETAMINOPHEN. [Concomitant]
     Active Substance: ACETAMINOPHEN
     Indication: PYREXIA
  14. SODIUM CITRATE. [Concomitant]
     Active Substance: SODIUM CITRATE
     Indication: CARDIAC RESYNCHRONISATION THERAPY
  15. DEXTROSE 10% [Concomitant]
     Active Substance: DEXTROSE
     Indication: PRODUCT USED FOR UNKNOWN INDICATION
     Dosage: 10ML/HR, UNKNOWN
     Route: 065
  16. D50 [Concomitant]
     Indication: BLOOD GLUCOSE DECREASED
     Dosage: UNK UNK, UNKNOWN
     Route: 042

REACTIONS (2)
  - Product use issue [Unknown]
  - Cardio-respiratory arrest [Recovered/Resolved]

NARRATIVE: CASE EVENT DATE: 20170807
